FAERS Safety Report 11670893 (Version 1)
Quarter: 2015Q4

REPORT INFORMATION
  Report Type: Spontaneous
  Country: US (occurrence: US)
  Receive Date: 20151027
  Receipt Date: 20151027
  Transmission Date: 20160304
  Serious: No
  Sender: FDA-Public Use
  Company Number: US-ELI_LILLY_AND_COMPANY-US201003008462

PATIENT
  Age: 81 Year
  Sex: Male

DRUGS (1)
  1. FORTEO [Suspect]
     Active Substance: TERIPARATIDE
     Indication: OSTEOPOROSIS
     Dosage: 20 UG, UNK
     Dates: start: 201003, end: 20100426

REACTIONS (6)
  - Eye pain [Unknown]
  - Presyncope [Unknown]
  - Oropharyngeal pain [Unknown]
  - Toothache [Unknown]
  - Dizziness [Unknown]
  - Pain in jaw [Unknown]

NARRATIVE: CASE EVENT DATE: 2010
